FAERS Safety Report 8222049-3 (Version None)
Quarter: 2012Q1

REPORT INFORMATION
  Report Type: 
  Country: None (occurrence: None)
  Receive Date: 20120320
  Receipt Date: 20120313
  Transmission Date: 20120608
  Serious: Yes (Hospitalization)
  Sender: FDA-Public Use
  Company Number: DE-UCBSA-053422

PATIENT
  Sex: Female
  Weight: 93 kg

DRUGS (16)
  1. CERTOLIZUMAB PEGOL [Suspect]
     Indication: RHEUMATOID ARTHRITIS
     Dosage: NO OF DOSES RECEIVED-25
     Route: 058
     Dates: start: 20101111
  2. PREDNISOLONE [Concomitant]
     Dates: start: 20110601, end: 20111001
  3. SIMVASTATIN [Concomitant]
     Indication: HYPERLIPIDAEMIA
     Dates: start: 20070701
  4. PREDNISOLONE [Concomitant]
     Dates: start: 20110401, end: 20110601
  5. GELOMYRTOL [Concomitant]
     Indication: NASOPHARYNGITIS
     Dates: start: 20120202, end: 20120204
  6. LEDERFOLAT [Concomitant]
     Indication: RHEUMATOID ARTHRITIS
     Dosage: 5 MG SUFFICIENT QUANTITY (QS)
     Dates: start: 20100101
  7. PREDNISOLONE [Concomitant]
     Indication: RHEUMATOID ARTHRITIS
     Route: 048
     Dates: start: 20101001, end: 20101206
  8. PREDNISOLONE [Concomitant]
     Dosage: 7.5MG,1.25 MG, ONCE DAILY
     Dates: start: 20101207, end: 20101215
  9. PREDNISOLONE [Concomitant]
     Dates: start: 20101215, end: 20110401
  10. PREDNISOLONE [Concomitant]
     Dates: start: 20111001
  11. ACETAMINOPHEN [Concomitant]
     Indication: NASOPHARYNGITIS
     Dates: start: 20120202, end: 20120204
  12. DEKRISTOL [Concomitant]
     Indication: OSTEOPOROSIS PROPHYLAXIS
     Dosage: 20000 IU-Q2S
     Dates: start: 20090601
  13. ACETYLCYSTEINE [Concomitant]
     Indication: NASOPHARYNGITIS
     Dates: start: 20120202, end: 20120204
  14. DICLOFENAC SODIUM [Concomitant]
     Indication: RHEUMATOID ARTHRITIS
     Dates: start: 20101001
  15. METHOTREXATE [Concomitant]
     Indication: RHEUMATOID ARTHRITIS
     Dosage: 15 MG SUFFICIENT QUANTITY (QS)
     Dates: start: 20091001
  16. THYROXIN [Concomitant]
     Indication: THYROIDECTOMY

REACTIONS (1)
  - DERMATITIS ALLERGIC [None]
